FAERS Safety Report 9816443 (Version 5)
Quarter: 2014Q4

REPORT INFORMATION
  Report Type: Spontaneous
  Country: US (occurrence: US)
  Receive Date: 20140114
  Receipt Date: 20141204
  Transmission Date: 20150529
  Serious: Yes (Hospitalization, Disabling, Other)
  Sender: FDA-Public Use
  Company Number: US-009507513-1401USA001385

PATIENT
  Sex: Female
  Weight: 56.69 kg

DRUGS (2)
  1. FOSAMAX [Suspect]
     Active Substance: ALENDRONATE SODIUM
     Indication: OSTEOPOROSIS
     Dosage: 70 MG, QW
     Route: 048
     Dates: start: 20030101, end: 20091231
  2. FOSAMAX [Suspect]
     Active Substance: ALENDRONATE SODIUM
     Indication: OSTEOPENIA

REACTIONS (21)
  - Calcium deficiency [Unknown]
  - Fall [Unknown]
  - Arthralgia [Not Recovered/Not Resolved]
  - Atypical femur fracture [Unknown]
  - Joint laxity [Unknown]
  - Gait disturbance [Unknown]
  - Low turnover osteopathy [Not Recovered/Not Resolved]
  - Fall [Unknown]
  - Femur fracture [Recovering/Resolving]
  - Fracture delayed union [Recovering/Resolving]
  - Foot fracture [Unknown]
  - Knee operation [Unknown]
  - Bursitis [Unknown]
  - Blood cholesterol increased [Unknown]
  - Bone graft [Recovering/Resolving]
  - Monarthritis [Unknown]
  - Gastrooesophageal reflux disease [Unknown]
  - Intramedullary rod insertion [Unknown]
  - Vitamin D deficiency [Unknown]
  - Hypertension [Unknown]
  - Joint crepitation [Unknown]

NARRATIVE: CASE EVENT DATE: 2003
